FAERS Safety Report 10436207 (Version 2)
Quarter: 2014Q4

REPORT INFORMATION
  Report Type: Spontaneous
  Country: JP (occurrence: JP)
  Receive Date: 20140908
  Receipt Date: 20141021
  Transmission Date: 20150528
  Serious: Yes (Hospitalization)
  Sender: FDA-Public Use
  Company Number: JP-SA-2014SA120949

PATIENT
  Age: 65 Year
  Sex: Female
  Weight: 60 kg

DRUGS (9)
  1. CISPLATIN. [Suspect]
     Active Substance: CISPLATIN
     Indication: OESOPHAGEAL SQUAMOUS CELL CARCINOMA
     Route: 042
     Dates: start: 20130812
  2. GRANISETRON [Concomitant]
     Active Substance: GRANISETRON
     Dosage: ON THE DAY 1 OF A CYCLE
  3. CISPLATIN. [Suspect]
     Active Substance: CISPLATIN
     Indication: OESOPHAGEAL SQUAMOUS CELL CARCINOMA
     Dosage: 40 MG/M2 (DAY 1,8)
     Route: 042
     Dates: start: 20130725
  4. FLUOROURACIL. [Suspect]
     Active Substance: FLUOROURACIL
     Indication: OESOPHAGEAL SQUAMOUS CELL CARCINOMA
     Dosage: 400 MG/M2
     Route: 042
     Dates: start: 20130725, end: 20130729
  5. APREPITANT. [Concomitant]
     Active Substance: APREPITANT
     Dosage: 125 MG/ 80 MG, ON THE DAY 1-3 OF A CYCLE
  6. DEXAMETHASONE SODIUM PHOSPHATE. [Concomitant]
     Active Substance: DEXAMETHASONE SODIUM PHOSPHATE
     Dosage: 1.5 V, ON THE DAY 1 OF A CYCLE
  7. ANTIBIOTICS [Concomitant]
     Active Substance: UNSPECIFIED INGREDIENT
  8. TAXOTERE [Suspect]
     Active Substance: DOCETAXEL
     Indication: OESOPHAGEAL SQUAMOUS CELL CARCINOMA
     Dosage: 35 MG/M2 (DAYS 1 AND 8)
     Route: 042
     Dates: start: 20130725, end: 20130812
  9. FLUOROURACIL. [Suspect]
     Active Substance: FLUOROURACIL
     Indication: OESOPHAGEAL SQUAMOUS CELL CARCINOMA
     Route: 042
     Dates: start: 20130812, end: 20130816

REACTIONS (10)
  - Acute kidney injury [Recovering/Resolving]
  - Blood urea increased [Recovering/Resolving]
  - Renal tubular necrosis [Recovered/Resolved]
  - Anuria [Recovering/Resolving]
  - Blood creatinine increased [Recovering/Resolving]
  - Hypertension [Recovering/Resolving]
  - Oliguria [Recovering/Resolving]
  - Dehydration [Recovering/Resolving]
  - Pyrexia [Recovering/Resolving]
  - Oedema [Recovering/Resolving]

NARRATIVE: CASE EVENT DATE: 20130823
